FAERS Safety Report 26114223 (Version 1)
Quarter: 2025Q4

REPORT INFORMATION
  Report Type: Spontaneous
  Country: CN (occurrence: CN)
  Receive Date: 20251202
  Receipt Date: 20251202
  Transmission Date: 20260117
  Serious: Yes (Other)
  Sender: ELI LILLY AND COMPANY
  Company Number: CN-Merck Healthcare KGaA-2025060892

PATIENT
  Age: 65 Year
  Sex: Male
  Weight: 50 kg

DRUGS (3)
  1. ERBITUX [Suspect]
     Active Substance: CETUXIMAB
     Indication: Tongue neoplasm
     Dosage: 600 MG, UNKNOWN
     Route: 041
     Dates: start: 20250830, end: 20250830
  2. PACLITAXEL [Concomitant]
     Active Substance: PACLITAXEL
     Indication: Tongue neoplasm
     Dosage: 360 MG, DAILY
     Route: 041
     Dates: start: 20250831, end: 20250831
  3. CISPLATIN [Concomitant]
     Active Substance: CISPLATIN
     Indication: Tongue neoplasm
     Dosage: 30 MG, DAILY
     Route: 041
     Dates: start: 20250831, end: 20250902

REACTIONS (1)
  - Myelosuppression [Recovering/Resolving]

NARRATIVE: CASE EVENT DATE: 20250909
